FAERS Safety Report 6738457-3 (Version None)
Quarter: 2010Q2

REPORT INFORMATION
  Report Type: 
  Country: None (occurrence: None)
  Receive Date: 20100524
  Receipt Date: 20100513
  Transmission Date: 20101027
  Serious: Yes (Other)
  Sender: FDA-Public Use
  Company Number: CA-JNJFOC-20100505879

PATIENT
  Sex: Female
  Weight: 56.7 kg

DRUGS (2)
  1. REMICADE [Suspect]
     Indication: CROHN'S DISEASE
     Route: 042
  2. IMURAN [Concomitant]

REACTIONS (8)
  - ARTHRALGIA [None]
  - FATIGUE [None]
  - MYALGIA [None]
  - NAUSEA [None]
  - PAINFUL RESPIRATION [None]
  - SKIN NODULE [None]
  - SWELLING [None]
  - TRISMUS [None]
